FAERS Safety Report 16747322 (Version 1)
Quarter: 2019Q3

REPORT INFORMATION
  Report Type: Spontaneous
  Country: US (occurrence: US)
  Receive Date: 20190827
  Receipt Date: 20190827
  Transmission Date: 20191005
  Serious: No
  Sender: FDA-Public Use
  Company Number: US-PACIRA-201500106

PATIENT
  Age: 77 Year
  Sex: Female

DRUGS (10)
  1. AZTREONAM. [Concomitant]
     Active Substance: AZTREONAM
     Indication: INFECTION PROPHYLAXIS
     Dosage: 2 G, Q8H IVPB OVER 24 HOURS, FREQUENCY Q8H
     Route: 042
  2. CEFAZOLIN [Concomitant]
     Active Substance: CEFAZOLIN
     Indication: INFECTION PROPHYLAXIS
     Dosage: 2 G, Q8H IVPB OVER 24 HOURS, FREQUENCY Q8H
     Route: 042
  3. EXPAREL [Suspect]
     Active Substance: BUPIVACAINE
     Indication: POSTOPERATIVE ANALGESIA
     Dosage: 20 CC DILUTED W SALINE TOTAL VOLUME 60 CC, THEN SPLIT INTO 3 - 20 CC INJECTIONS, FREQUENCY 3X
     Route: 050
  4. DURAMORPH [Concomitant]
     Active Substance: MORPHINE SULFATE
     Dosage: 5 MG, FREQUENCY 1X
  5. KETOROLAC [Concomitant]
     Active Substance: KETOROLAC TROMETHAMINE
     Dosage: 15 MG, FREQUENCY 1X
  6. CELECOXIB. [Concomitant]
     Active Substance: CELECOXIB
     Indication: ANALGESIC THERAPY
     Dosage: 100 MG, FREQUENCY DAILY
     Route: 048
  7. OXYCODONE [Concomitant]
     Active Substance: OXYCODONE
     Indication: BREAKTHROUGH PAIN
     Dosage: 5 MG, FREQUENCY Q4H
     Route: 048
  8. ACETAMINOPHEN. [Concomitant]
     Active Substance: ACETAMINOPHEN
     Indication: ANALGESIC THERAPY
     Dosage: 500 MG, FREQUENCY Q6H
     Route: 048
  9. PREGABALIN. [Concomitant]
     Active Substance: PREGABALIN
     Indication: ANALGESIC THERAPY
     Dosage: 50 MG, FREQUENCY BID
     Route: 048
  10. MARCAINE [Concomitant]
     Active Substance: BUPIVACAINE HYDROCHLORIDE
     Indication: PRODUCT USED FOR UNKNOWN INDICATION
     Dosage: 40 CC, FREQUENCY 1X

REACTIONS (5)
  - Movement disorder [Recovered/Resolved]
  - Peroneal nerve palsy [Recovered/Resolved]
  - Labelled drug-drug interaction medication error [Unknown]
  - Sensory loss [Recovered/Resolved]
  - Product administration error [Unknown]
